FAERS Safety Report 10693701 (Version 1)
Quarter: 2015Q1

REPORT INFORMATION
  Report Type: Spontaneous
  Country: US (occurrence: US)
  Receive Date: 20150106
  Receipt Date: 20150106
  Transmission Date: 20150721
  Serious: Yes (Hospitalization, Other)
  Sender: FDA-Public Use
  Company Number: US-TEVA-531957USA

PATIENT
  Age: 0 Day
  Sex: Female

DRUGS (2)
  1. AVONEX [Suspect]
     Active Substance: INTERFERON BETA-1A
     Dosage: 4.2857 MICROGRAM DAILY;
  2. COPAXONE [Suspect]
     Active Substance: GLATIRAMER ACETATE
     Indication: PRODUCT USED FOR UNKNOWN INDICATION
     Route: 065

REACTIONS (3)
  - Foetal exposure during pregnancy [Unknown]
  - Cyanosis neonatal [Recovered/Resolved]
  - Convulsion neonatal [Recovered/Resolved]

NARRATIVE: CASE EVENT DATE: 20120904
